FAERS Safety Report 4928176-8 (Version None)
Quarter: 2006Q1

REPORT INFORMATION
  Report Type: 
  Country: None (occurrence: None)
  Receive Date: 20060223
  Receipt Date: 20060202
  Transmission Date: 20060701
  Serious: Yes (Hospitalization)
  Sender: FDA-Public Use
  Company Number: GB200601002744

PATIENT
  Age: 34 Year
  Sex: Female
  Weight: 50 kg

DRUGS (28)
  1. XIGRIS [Suspect]
     Indication: SEPSIS
     Dosage: 24 UG/KG/HR, INTRAVENOUS
     Route: 042
     Dates: start: 20060116, end: 20060120
  2. XIGRIS [Suspect]
  3. CEFUROXIME [Concomitant]
  4. ACETAMINOPHEN [Concomitant]
  5. TINZAPARIN SODIUM (HEPARIN-FRACTION, SODIUM SALT) [Concomitant]
  6. CLARITHROMYCIN [Concomitant]
  7. METRONIDAZOLE [Concomitant]
  8. RANITIDINE [Concomitant]
  9. PABRINEX (ASCORBIC ACID, NICOTINAMIDE, PYRIDOXINE HYDROCHLORIDE, RIBOF [Concomitant]
  10. HYDROCORTISONE [Concomitant]
  11. ACETYLCYSTEINE [Concomitant]
  12. FOLIC ACID [Concomitant]
  13. VASOPRESSIN AND ANALOGUES [Concomitant]
  14. PROPOFOL [Concomitant]
  15. ALFENTANIL [Concomitant]
  16. NORADRENALINE (NOREPINEPHRINE) [Concomitant]
  17. ATRACURIUM BESYLATE [Concomitant]
  18. HEPARIN [Concomitant]
  19. ACTRAPID HUMAN (INUSLIN HUMAN) [Concomitant]
  20. FUROSEMIDE [Concomitant]
  21. POTASSIUM CHLORIDE [Concomitant]
  22. MAGNESIUM (MAGNESIUM) [Concomitant]
  23. POTASSIUM PHOSPHATE DIBASIC (POTASSIUM PHOSPHATE DIBASIC) [Concomitant]
  24. VECURONIUM (VECURONIUM) [Concomitant]
  25. SUXAMETHONIUM (SUXAMETHONIUM) [Concomitant]
  26. GLYCOPYRROLATE [Concomitant]
  27. FLUCONAZOLE [Concomitant]
  28. PHOSPHATE-SANDOZ (POTASSIUM BICARBONATE, SODIUM BICARBONATE, SODIUM PH [Concomitant]

REACTIONS (11)
  - ABDOMINAL DISCOMFORT [None]
  - ABORTION SPONTANEOUS [None]
  - DIFFICULT TO WEAN FROM VENTILATOR [None]
  - DRUG EXPOSURE DURING PREGNANCY [None]
  - FATIGUE [None]
  - HAEMODIALYSIS [None]
  - LUNG INFECTION PSEUDOMONAL [None]
  - PATHOGEN RESISTANCE [None]
  - PERITONEAL EFFUSION [None]
  - RESPIRATORY TRACT INFECTION BACTERIAL [None]
  - THERAPY NON-RESPONDER [None]
